FAERS Safety Report 4768686-X (Version None)
Quarter: 2005Q3

REPORT INFORMATION
  Report Type: 
  Country: None (occurrence: None)
  Receive Date: 20050914
  Receipt Date: 20050907
  Transmission Date: 20060218
  Serious: Yes (Hospitalization)
  Sender: FDA-Public Use
  Company Number: US-JNJFOC-20050802816

PATIENT
  Sex: Male
  Weight: 18.3 kg

DRUGS (5)
  1. RISPERDAL [Suspect]
     Dosage: PATIENT ACCIDENTALLY GIVEN 3 ML PRIOR TO ADVERSE EVENT.
     Route: 048
  2. ADDERALL 10 [Concomitant]
     Route: 065
  3. ADDERALL 10 [Concomitant]
     Route: 065
  4. ADDERALL 10 [Concomitant]
     Route: 065
  5. ADDERALL 10 [Concomitant]
     Route: 065

REACTIONS (8)
  - ACCIDENTAL OVERDOSE [None]
  - APNOEA [None]
  - COMA [None]
  - CONVULSION [None]
  - DRUG ADMINISTRATION ERROR [None]
  - ELECTROCARDIOGRAM QT PROLONGED [None]
  - HYPONATRAEMIA [None]
  - HYPOTENSION [None]
